FAERS Safety Report 20032159 (Version 2)
Quarter: 2021Q4

REPORT INFORMATION
  Report Type: Spontaneous
  Country: US (occurrence: US)
  Receive Date: 20211103
  Receipt Date: 20211103
  Transmission Date: 20220303
  Serious: No
  Sender: FDA-Public Use
  Company Number: US-ALLERGAN-2129804US

PATIENT
  Sex: Female

DRUGS (2)
  1. VRAYLAR [Suspect]
     Active Substance: CARIPRAZINE
     Indication: Product used for unknown indication
     Dosage: 3 MG
  2. VRAYLAR [Suspect]
     Active Substance: CARIPRAZINE
     Indication: Product used for unknown indication
     Dosage: 1.5 MG

REACTIONS (9)
  - Muscular weakness [Unknown]
  - Confusional state [Unknown]
  - Pain [Unknown]
  - Diarrhoea [Unknown]
  - Tremor [Unknown]
  - Nausea [Unknown]
  - Tardive dyskinesia [Unknown]
  - Musculoskeletal stiffness [Unknown]
  - Vision blurred [Unknown]
